FAERS Safety Report 6963477-3 (Version None)
Quarter: 2010Q3

REPORT INFORMATION
  Report Type: 
  Country: None (occurrence: None)
  Receive Date: 20100823
  Receipt Date: 20100720
  Transmission Date: 20110219
  Serious: No
  Sender: FDA-Public Use
  Company Number: 015891

PATIENT
  Sex: Female

DRUGS (2)
  1. CIMZIA [Suspect]
     Dosage: (UNSPECIFIED SUBCUTANEOUS)
     Route: 058
     Dates: start: 20100503
  2. PREDNISONE [Suspect]
     Dosage: SEE IMAGE
     Route: 048

REACTIONS (2)
  - OROPHARYNGEAL PAIN [None]
  - SINUSITIS [None]
